FAERS Safety Report 10153447 (Version 8)
Quarter: 2014Q4

REPORT INFORMATION
  Report Type: Report from Study
  Country: US (occurrence: US)
  Receive Date: 20140505
  Receipt Date: 20141024
  Transmission Date: 20150528
  Serious: Yes (Hospitalization)
  Sender: FDA-Public Use
  Company Number: US-JNJFOC-20140501349

PATIENT
  Age: 68 Year
  Sex: Male
  Weight: 68 kg

DRUGS (13)
  1. CALCIUM CARBONATE. [Concomitant]
     Active Substance: CALCIUM CARBONATE
     Dates: start: 20140404
  2. MULTIVITAMINS [Concomitant]
     Active Substance: VITAMINS
     Route: 048
     Dates: start: 20140404
  3. VALTREX [Concomitant]
     Active Substance: VALACYCLOVIR HYDROCHLORIDE
     Indication: PROPHYLAXIS
     Route: 048
     Dates: start: 20140404
  4. METOPROLOL [Concomitant]
     Active Substance: METOPROLOL
     Route: 048
  5. CALCIUM MAGNESIUM [Concomitant]
  6. MUPIROCIN. [Concomitant]
     Active Substance: MUPIROCIN
  7. AXIRON [Concomitant]
     Active Substance: TESTOSTERONE
     Dosage: 2 ACT TO SKIN DAILY
     Route: 062
  8. MOBIC [Concomitant]
     Active Substance: MELOXICAM
     Indication: ARTHRALGIA
     Route: 048
     Dates: start: 2012
  9. IMBRUVICA [Suspect]
     Active Substance: IBRUTINIB
     Indication: CHRONIC LYMPHOCYTIC LEUKAEMIA
     Route: 048
     Dates: start: 20140430, end: 20140801
  10. BACLOFEN. [Concomitant]
     Active Substance: BACLOFEN
     Dosage: TID AS NEEDED
     Route: 048
  11. IMBRUVICA [Suspect]
     Active Substance: IBRUTINIB
     Indication: CHRONIC LYMPHOCYTIC LEUKAEMIA
     Route: 048
     Dates: start: 20140411, end: 20140425
  12. ONDANSETRON [Concomitant]
     Active Substance: ONDANSETRON
     Route: 048
  13. IMBRUVICA [Suspect]
     Active Substance: IBRUTINIB
     Indication: CHRONIC LYMPHOCYTIC LEUKAEMIA
     Route: 048
     Dates: start: 20140308, end: 20140408

REACTIONS (19)
  - Disease progression [Not Recovered/Not Resolved]
  - Hyponatraemia [Recovered/Resolved]
  - Contusion [Not Recovered/Not Resolved]
  - Platelet count decreased [Not Recovered/Not Resolved]
  - Pneumonia staphylococcal [Recovered/Resolved]
  - Atrial flutter [Recovered/Resolved]
  - Bronchitis [Unknown]
  - White blood cell count decreased [Unknown]
  - Hordeolum [Recovered/Resolved]
  - Dizziness [Unknown]
  - Neck pain [Recovered/Resolved]
  - Hypomagnesaemia [Not Recovered/Not Resolved]
  - Arthralgia [Recovered/Resolved]
  - Joint swelling [Recovered/Resolved]
  - Drug ineffective [Unknown]
  - Diarrhoea [Recovered/Resolved]
  - Decreased appetite [Recovering/Resolving]
  - Acne [Recovered/Resolved]
  - Pyrexia [Recovered/Resolved]

NARRATIVE: CASE EVENT DATE: 2014
